FAERS Safety Report 9125092 (Version 1)
Quarter: 2013Q1

REPORT INFORMATION
  Report Type: Report from Study
  Country: US (occurrence: US)
  Receive Date: 20130121
  Receipt Date: 20130121
  Transmission Date: 20140127
  Serious: No
  Sender: FDA-Public Use
  Company Number: US-VERTEX PHARMACEUTICALS INC.-2013-000789

PATIENT
  Age: 60 Year
  Sex: Female

DRUGS (4)
  1. VX-950 (TELAPREVIR) [Suspect]
     Indication: HEPATITIS C
     Dosage: 2 UNK, TID
     Route: 048
     Dates: start: 20121129
  2. REBETOL [Suspect]
     Indication: HEPATITIS C
     Dosage: 400 MG, BID
     Route: 048
     Dates: start: 20121129
  3. PEGINTRON                          /01543001/ [Suspect]
     Indication: HEPATITIS C
     Dosage: 120 ?G, QW
     Route: 058
     Dates: start: 20121129
  4. PEDIACARE [Concomitant]

REACTIONS (8)
  - Drug dose omission [Recovered/Resolved]
  - Delirium [Not Recovered/Not Resolved]
  - Vision blurred [Not Recovered/Not Resolved]
  - Malaise [Not Recovered/Not Resolved]
  - Feeling of body temperature change [Not Recovered/Not Resolved]
  - Nausea [Not Recovered/Not Resolved]
  - Vomiting [Not Recovered/Not Resolved]
  - Diarrhoea [Not Recovered/Not Resolved]
